FAERS Safety Report 20730518 (Version 1)
Quarter: 2022Q2

REPORT INFORMATION
  Report Type: Spontaneous
  Country: JP (occurrence: JP)
  Receive Date: 20220420
  Receipt Date: 20220420
  Transmission Date: 20220721
  Serious: Yes (Other)
  Sender: FDA-Public Use
  Company Number: JP-Merck Healthcare KGaA-9297888

PATIENT
  Age: 34 Year
  Sex: Male

DRUGS (9)
  1. ERBITUX [Suspect]
     Active Substance: CETUXIMAB
     Indication: Rectal cancer metastatic
     Dosage: 500 MG/M2, CYCLICAL
     Route: 065
  2. ERBITUX [Suspect]
     Active Substance: CETUXIMAB
     Dosage: 736 MG, CYCLICAL
     Route: 065
     Dates: start: 20200825, end: 20201015
  3. OXALIPLATIN [Suspect]
     Active Substance: OXALIPLATIN
     Indication: Rectal cancer metastatic
     Dosage: 85 MG/M2, CYCLICAL
     Route: 065
  4. OXALIPLATIN [Suspect]
     Active Substance: OXALIPLATIN
     Dosage: 150 MG, CYCLICAL
     Route: 041
     Dates: start: 20200825, end: 20201015
  5. FLUOROURACIL [Suspect]
     Active Substance: FLUOROURACIL
     Indication: Rectal cancer metastatic
     Dosage: 3200 MG/M2, CYCLICAL
     Route: 065
  6. FLUOROURACIL [Suspect]
     Active Substance: FLUOROURACIL
     Dosage: 3517 MG, CYCLICAL
     Route: 041
     Dates: start: 20200825, end: 20201015
  7. IRINOTECAN [Suspect]
     Active Substance: IRINOTECAN
     Indication: Rectal cancer metastatic
     Dosage: 165 MG/M2, CYCLICAL
     Route: 065
  8. IRINOTECAN [Suspect]
     Active Substance: IRINOTECAN
     Dosage: 300 MG, CYCLICAL
     Route: 041
     Dates: start: 20200825, end: 20201015
  9. LEUCOVORIN [Concomitant]
     Active Substance: LEUCOVORIN
     Indication: Rectal cancer metastatic
     Dosage: UNK, UNKNOWN
     Route: 065

REACTIONS (2)
  - Neutropenia [Recovered/Resolved]
  - Off label use [Unknown]

NARRATIVE: CASE EVENT DATE: 20200914
